FAERS Safety Report 18695364 (Version 7)
Quarter: 2022Q4

REPORT INFORMATION
  Report Type: Spontaneous
  Country: US (occurrence: US)
  Receive Date: 20210104
  Receipt Date: 20221007
  Transmission Date: 20230113
  Serious: No
  Sender: FDA-Public Use
  Company Number: US-PFIZER INC-2020518014

PATIENT
  Age: 67 Year
  Sex: Female

DRUGS (2)
  1. EUCRISA [Suspect]
     Active Substance: CRISABOROLE
     Dosage: APPLY A THIN LAYER TO AFFECTED AREA TWICE DAILY AS DIRECTED BY DOCTOR (BILATERAL ARMS AND LEGS)
     Route: 061
  2. EUCRISA [Suspect]
     Active Substance: CRISABOROLE
     Dosage: APPLY TO AFFECTED AREAS (ARMS, LEGS, HANDS) 2XS/DAY PRN

REACTIONS (1)
  - Rash [Unknown]
